FAERS Safety Report 24435322 (Version 2)
Quarter: 2025Q2

REPORT INFORMATION
  Report Type: Spontaneous
  Country: DE (occurrence: DE)
  Receive Date: 20241015
  Receipt Date: 20250531
  Transmission Date: 20250717
  Serious: Yes (Other)
  Sender: STEMLINE THERAPEUTICS
  Company Number: DE-STEMLINE THERAPEUTICS B.V.-2024-STML-DE004770

PATIENT

DRUGS (1)
  1. ELZONRIS [Suspect]
     Active Substance: TAGRAXOFUSP-ERZS
     Indication: Product used for unknown indication
     Route: 065
     Dates: end: 20240905

REACTIONS (3)
  - Acute kidney injury [Unknown]
  - Skeletal injury [Unknown]
  - Liver function test increased [Unknown]
